FAERS Safety Report 17565552 (Version 1)
Quarter: 2020Q1

REPORT INFORMATION
  Report Type: Spontaneous
  Country: US (occurrence: US)
  Receive Date: 20200320
  Receipt Date: 20200320
  Transmission Date: 20200409
  Serious: No
  Sender: FDA-Public Use
  Company Number: None

PATIENT
  Age: 49 Year
  Sex: Female
  Weight: 71.55 kg

DRUGS (5)
  1. LEXAPRO [Concomitant]
     Active Substance: ESCITALOPRAM OXALATE
  2. BABY ASPIRIN [Concomitant]
     Active Substance: ASPIRIN
  3. NASONEX [Concomitant]
     Active Substance: MOMETASONE FUROATE
  4. CLARITIN [Concomitant]
     Active Substance: LORATADINE
  5. MONTELUKAST SOD 10 MG TABLET - SUBSTITUTED FOR SINGULAIR [Suspect]
     Active Substance: MONTELUKAST SODIUM
     Indication: HYPERSENSITIVITY
     Dosage: ?          QUANTITY:1 TABLET(S);?
     Route: 048
     Dates: start: 20180102, end: 20200306

REACTIONS (2)
  - Dyskinesia [None]
  - Sleep talking [None]

NARRATIVE: CASE EVENT DATE: 20190301
